FAERS Safety Report 26216104 (Version 1)
Quarter: 2025Q4

REPORT INFORMATION
  Report Type: Spontaneous
  Country: EU (occurrence: EU)
  Receive Date: 20251231
  Receipt Date: 20251231
  Transmission Date: 20260117
  Serious: Yes (Death, Congenital Anomaly, Other)
  Sender: AUROBINDO
  Company Number: EU-AFSSAPS-MP2025001656

PATIENT
  Age: 0 Day
  Sex: Male
  Weight: 0.855 kg

DRUGS (1)
  1. BISOPROLOL FUMARATE [Suspect]
     Active Substance: BISOPROLOL FUMARATE
     Indication: Aortic dilatation
     Dosage: 2.5 MILLIGRAM, ONCE A DAY
     Route: 065
     Dates: start: 20250211, end: 20250730

REACTIONS (5)
  - Abortion induced [Fatal]
  - Brain malformation [Not Recovered/Not Resolved]
  - Cleft palate [Not Recovered/Not Resolved]
  - Clinodactyly [Not Recovered/Not Resolved]
  - Maternal exposure during pregnancy [Recovered/Resolved]

NARRATIVE: CASE EVENT DATE: 20250730
